FAERS Safety Report 10605897 (Version 2)
Quarter: 2014Q4

REPORT INFORMATION
  Report Type: Spontaneous
  Country: US (occurrence: US)
  Receive Date: 20141125
  Receipt Date: 20141204
  Transmission Date: 20150529
  Serious: No
  Sender: FDA-Public Use
  Company Number: US-BIOGENIDEC-2014BI122185

PATIENT
  Age: 40 Year
  Sex: Female

DRUGS (1)
  1. TYSABRI [Suspect]
     Active Substance: NATALIZUMAB
     Indication: MULTIPLE SCLEROSIS
     Route: 042
     Dates: start: 20121219

REACTIONS (6)
  - Fear [Unknown]
  - General symptom [Unknown]
  - Emotional disorder [Unknown]
  - Multiple sclerosis [Unknown]
  - Fatigue [Unknown]
  - Confusional state [Unknown]

NARRATIVE: CASE EVENT DATE: 20141121
